FAERS Safety Report 15894561 (Version 3)
Quarter: 2019Q2

REPORT INFORMATION
  Report Type: Report from Study
  Country: CA (occurrence: CA)
  Receive Date: 20190131
  Receipt Date: 20190604
  Transmission Date: 20190711
  Serious: Yes (Other)
  Sender: FDA-Public Use
  Company Number: CA-ROCHE-2248149

PATIENT
  Age: 25 Year
  Sex: Female

DRUGS (1)
  1. OCREVUS [Suspect]
     Active Substance: OCRELIZUMAB
     Indication: RELAPSING-REMITTING MULTIPLE SCLEROSIS
     Dosage: AT DAY 0 AND 14, THEN 600 MG EVERY 6 MONTH
     Route: 042
     Dates: start: 20190111

REACTIONS (13)
  - Rhinorrhoea [Unknown]
  - Chills [Not Recovered/Not Resolved]
  - Cough [Recovering/Resolving]
  - Pain in extremity [Unknown]
  - Nausea [Recovered/Resolved]
  - Eye disorder [Unknown]
  - Malaise [Recovered/Resolved]
  - Fatigue [Unknown]
  - Sinusitis [Unknown]
  - Ear swelling [Not Recovered/Not Resolved]
  - Nasopharyngitis [Not Recovered/Not Resolved]
  - Vomiting [Recovered/Resolved]
  - Memory impairment [Unknown]

NARRATIVE: CASE EVENT DATE: 20190111
